FAERS Safety Report 14702510 (Version 2)
Quarter: 2018Q4

REPORT INFORMATION
  Report Type: Spontaneous
  Country: FR (occurrence: FR)
  Receive Date: 20180401
  Receipt Date: 20181026
  Transmission Date: 20190204
  Serious: Yes (Other)
  Sender: FDA-Public Use
  Company Number: FR-MERCK KGAA-2044847

PATIENT
  Age: 63 Year
  Sex: Female

DRUGS (1)
  1. EUTHYROX [Suspect]
     Active Substance: LEVOTHYROXINE SODIUM
     Indication: POST PROCEDURAL HYPOTHYROIDISM
     Dates: start: 201703

REACTIONS (25)
  - Abdominal distension [None]
  - Abdominal distension [Not Recovered/Not Resolved]
  - Night sweats [Not Recovered/Not Resolved]
  - Somnolence [Not Recovered/Not Resolved]
  - Loss of personal independence in daily activities [None]
  - Pain in extremity [None]
  - Malaise [None]
  - Photosensitivity reaction [None]
  - Pain [Not Recovered/Not Resolved]
  - Fatigue [Not Recovered/Not Resolved]
  - Alopecia [Not Recovered/Not Resolved]
  - Depression [Not Recovered/Not Resolved]
  - Temperature intolerance [None]
  - Palpitations [Not Recovered/Not Resolved]
  - Swelling face [None]
  - Discomfort [Not Recovered/Not Resolved]
  - Gastrointestinal motility disorder [None]
  - Disturbance in attention [Not Recovered/Not Resolved]
  - Social avoidant behaviour [Not Recovered/Not Resolved]
  - Hyperhidrosis [Not Recovered/Not Resolved]
  - Gastrointestinal disorder [None]
  - Restless legs syndrome [None]
  - Hyperthyroidism [Not Recovered/Not Resolved]
  - Hypothyroidism [None]
  - Affective disorder [None]

NARRATIVE: CASE EVENT DATE: 2017
